FAERS Safety Report 5713746-X (Version None)
Quarter: 2008Q2

REPORT INFORMATION
  Report Type: 
  Country: None (occurrence: None)
  Receive Date: 20080421
  Receipt Date: 20080403
  Transmission Date: 20081010
  Serious: Yes (Other)
  Sender: FDA-Public Use
  Company Number: 2008BI007298

PATIENT
  Age: 53 Year
  Sex: Female
  Weight: 79.8331 kg

DRUGS (1)
  1. AVONEX [Suspect]
     Indication: MULTIPLE SCLEROSIS
     Dosage: 30 UG;QW; IM
     Route: 030
     Dates: start: 20060704, end: 20080301

REACTIONS (27)
  - ABASIA [None]
  - BLINDNESS [None]
  - BLOOD CHOLESTEROL INCREASED [None]
  - BLOOD GLUCOSE INCREASED [None]
  - BLOOD TRIGLYCERIDES INCREASED [None]
  - BRAIN INJURY [None]
  - CEREBROVASCULAR ACCIDENT [None]
  - FATIGUE [None]
  - FEELING ABNORMAL [None]
  - GESTATIONAL DIABETES [None]
  - HYPOAESTHESIA [None]
  - INCONTINENCE [None]
  - INFLUENZA LIKE ILLNESS [None]
  - INJECTION SITE HAEMORRHAGE [None]
  - MULTIPLE SCLEROSIS [None]
  - MUSCULOSKELETAL PAIN [None]
  - OPTIC NEURITIS [None]
  - OSTEOPOROSIS [None]
  - PAIN IN EXTREMITY [None]
  - PARALYSIS [None]
  - QUALITY OF LIFE DECREASED [None]
  - SELF-INJURIOUS IDEATION [None]
  - SPINAL DISORDER [None]
  - STRESS [None]
  - SUICIDAL IDEATION [None]
  - THYROID DISORDER [None]
  - URINARY TRACT INFECTION [None]
